FAERS Safety Report 9993653 (Version 1)
Quarter: 2014Q1

REPORT INFORMATION
  Report Type: Spontaneous
  Country: US (occurrence: US)
  Receive Date: 20140310
  Receipt Date: 20140310
  Transmission Date: 20141002
  Serious: Yes (Hospitalization)
  Sender: FDA-Public Use
  Company Number: PHHY2014US026612

PATIENT
  Age: 27 Year
  Sex: Male

DRUGS (2)
  1. IMATINIB [Suspect]
  2. METHYLPREDNISOLONE [Suspect]

REACTIONS (2)
  - Diarrhoea [Unknown]
  - Therapeutic response decreased [Unknown]
